FAERS Safety Report 17332201 (Version 1)
Quarter: 2020Q1

REPORT INFORMATION
  Report Type: Spontaneous
  Country: DE (occurrence: DE)
  Receive Date: 20200128
  Receipt Date: 20200128
  Transmission Date: 20200409
  Serious: Yes (Other)
  Sender: FDA-Public Use
  Company Number: DE-ASTRAZENECA-2020SE12527

PATIENT
  Age: 46 Year
  Sex: Male
  Weight: 130 kg

DRUGS (11)
  1. FASENRA [Suspect]
     Active Substance: BENRALIZUMAB
     Indication: ASTHMA
     Dosage: 30.0MG UNKNOWN
     Route: 058
     Dates: start: 20191219
  2. OXIS [Concomitant]
     Active Substance: FORMOTEROL FUMARATE
  3. PREDNISOLON [Concomitant]
     Active Substance: PREDNISOLONE
     Dosage: (25 MG-0 MG-5 MG), PREDNISOLON NEVER LESS THAN 15 MG IN WINTER, NEVER LESS THAN 7.5 MG IN SUMMER
  4. MEPOLIZUMAB [Concomitant]
     Active Substance: MEPOLIZUMAB
     Indication: SLEEP DISORDER
  5. SPIRIVA [Concomitant]
     Active Substance: TIOTROPIUM BROMIDE MONOHYDRATE
     Dosage: (2-0-0)
  6. BERODUAL [Concomitant]
     Active Substance: FENOTEROL HYDROBROMIDE\IPRATROPIUM BROMIDE
     Indication: FEELING ABNORMAL
     Dosage: (25 MG-0 MG-5 MG)
  7. MONTELUKAST [Concomitant]
     Active Substance: MONTELUKAST SODIUM
     Dosage: 10.0MG UNKNOWN
  8. MONTEL [Concomitant]
     Dosage: (2-0-0)
  9. SYMBICORT [Concomitant]
     Active Substance: BUDESONIDE\FORMOTEROL FUMARATE DIHYDRATE
     Dosage: 320/9 ?G (2-2-2)
  10. SALBUTAMOL [Concomitant]
     Active Substance: ALBUTEROL
     Dosage: AS NEEDED
  11. CORTICOSTEROID [Concomitant]
     Active Substance: CORTICOSTEROID NOS
     Dosage: AS NEEDED

REACTIONS (5)
  - Arthralgia [Unknown]
  - Headache [Unknown]
  - Drug ineffective [Unknown]
  - Forced expiratory volume decreased [Unknown]
  - Dyspnoea [Unknown]
